FAERS Safety Report 17236102 (Version 1)
Quarter: 2020Q1

REPORT INFORMATION
  Report Type: Spontaneous
  Country: NL (occurrence: NL)
  Receive Date: 20200106
  Receipt Date: 20200106
  Transmission Date: 20200409
  Serious: Yes (Hospitalization)
  Sender: FDA-Public Use
  Company Number: NL-ACCORD-168711

PATIENT
  Sex: Female
  Weight: 79 kg

DRUGS (15)
  1. METOCLOPRAMIDE. [Concomitant]
     Active Substance: METOCLOPRAMIDE
  2. ABASAGLAR [Concomitant]
     Active Substance: INSULIN GLARGINE
  3. LIDOCAINE. [Concomitant]
     Active Substance: LIDOCAINE
  4. THYRAX [Concomitant]
     Active Substance: LEVOTHYROXINE
  5. PARACETAMOL [Concomitant]
     Active Substance: ACETAMINOPHEN
  6. HYDROCHLOROTHIAZIDE. [Concomitant]
     Active Substance: HYDROCHLOROTHIAZIDE
  7. LANOXIN [Concomitant]
     Active Substance: DIGOXIN
  8. ACENOCOUMAROL [Concomitant]
     Active Substance: ACENOCOUMAROL
  9. PANTOPRAZOLE [Concomitant]
     Active Substance: PANTOPRAZOLE
  10. METOPROLOL. [Concomitant]
     Active Substance: METOPROLOL
  11. GEMCITABINE/GEMCITABINE HYDROCHLORIDE [Suspect]
     Active Substance: GEMCITABINE\GEMCITABINE HYDROCHLORIDE
     Indication: PANCREATIC CARCINOMA
     Dosage: SOLUTION FOR INFUSION, 40 MG / ML (MILLIGRAMS PER MILLILITER), ONCE EVERY 4 WEEKS, 3X 1600MG.
     Dates: start: 20190801, end: 20191121
  12. CREON [Concomitant]
     Active Substance: PANCRELIPASE AMYLASE\PANCRELIPASE LIPASE\PANCRELIPASE PROTEASE
  13. AZITHROMYCIN ANHYDROUS. [Concomitant]
     Active Substance: AZITHROMYCIN ANHYDROUS
  14. NOVORAPID [Concomitant]
     Active Substance: INSULIN ASPART
  15. PANZYTRAT [Concomitant]

REACTIONS (2)
  - Generalised oedema [Recovering/Resolving]
  - Hypoalbuminaemia [Recovering/Resolving]
